FAERS Safety Report 20941293 (Version 3)
Quarter: 2023Q2

REPORT INFORMATION
  Report Type: Spontaneous
  Country: CA (occurrence: CA)
  Receive Date: 20220609
  Receipt Date: 20230412
  Transmission Date: 20230721
  Serious: Yes (Other)
  Sender: FDA-Public Use
  Company Number: CA-CELLTRION INC.-2022CA001617

PATIENT

DRUGS (6)
  1. INFLECTRA [Suspect]
     Active Substance: INFLIXIMAB-DYYB
     Indication: Crohn^s disease
     Dosage: UNK
     Route: 042
     Dates: start: 20211221
  2. INFLECTRA [Suspect]
     Active Substance: INFLIXIMAB-DYYB
     Dosage: 300 MG, AT 2, 6 THEN EVERY 8 WEEKS
     Route: 042
     Dates: start: 20220109
  3. INFLECTRA [Suspect]
     Active Substance: INFLIXIMAB-DYYB
     Dosage: 300 MG, AT 2, 6 THEN EVERY 8 WEEKS
     Route: 042
     Dates: start: 20220109
  4. INFLECTRA [Suspect]
     Active Substance: INFLIXIMAB-DYYB
     Dosage: 300 MG, AT 2, 6 THEN EVERY 8 WEEKS
     Route: 042
     Dates: start: 20220203
  5. INFLECTRA [Suspect]
     Active Substance: INFLIXIMAB-DYYB
     Dosage: 300 MG, AT 2, 6 THEN EVERY 8 WEEKS
     Route: 042
     Dates: start: 20220331
  6. PREDNISONE [Concomitant]
     Active Substance: PREDNISONE
     Dosage: UNK

REACTIONS (6)
  - Autoimmune disorder [Unknown]
  - Dry skin [Unknown]
  - Arthralgia [Unknown]
  - Weight increased [Unknown]
  - Arthritis [Unknown]
  - Inappropriate schedule of product administration [Unknown]

NARRATIVE: CASE EVENT DATE: 20220109
